FAERS Safety Report 25891014 (Version 1)
Quarter: 2025Q4

REPORT INFORMATION
  Report Type: Spontaneous
  Country: US (occurrence: None)
  Receive Date: 20251007
  Receipt Date: 20251007
  Transmission Date: 20260119
  Serious: Yes (Hospitalization)
  Sender: FDA-CTU
  Company Number: None

PATIENT
  Age: 50 Year
  Sex: Female
  Weight: 55.35 kg

DRUGS (1)
  1. TIOCONAZOLE OINTMENT 6.5% [Suspect]
     Active Substance: TIOCONAZOLE
     Indication: Vulvovaginal pruritus
     Dosage: OTHER QUANTITY : 1 O.16 0Z;?FREQUENCY : AT BEDTIME;?
     Route: 067
     Dates: start: 20251006, end: 20251007

REACTIONS (5)
  - Vulvovaginal swelling [None]
  - Vulvovaginal discomfort [None]
  - Vulvovaginal discomfort [None]
  - Application site swelling [None]
  - Therapy cessation [None]

NARRATIVE: CASE EVENT DATE: 20251007
